FAERS Safety Report 10216786 (Version 1)
Quarter: 2014Q2

REPORT INFORMATION
  Report Type: Spontaneous
  Country: GB (occurrence: GB)
  Receive Date: 20140604
  Receipt Date: 20140604
  Transmission Date: 20141212
  Serious: Yes (Other)
  Sender: FDA-Public Use
  Company Number: GB-TEVA-484406ISR

PATIENT
  Age: 61 Year
  Sex: Female
  Weight: 60.3 kg

DRUGS (11)
  1. SIMVASTATIN [Suspect]
  2. FEMOSTON [Concomitant]
     Dates: start: 20140513
  3. FLUTICASONE PROPIONATE [Concomitant]
     Dates: start: 20140428
  4. KLIOVANCE [Concomitant]
     Dates: start: 20140217, end: 20140512
  5. MOMETASONE [Concomitant]
     Dates: start: 20140221
  6. NAPROXEN [Concomitant]
     Dates: start: 20140124, end: 20140221
  7. PREMPAK [Concomitant]
     Dates: start: 20140214, end: 20140509
  8. QVAR [Concomitant]
     Dates: start: 20140221
  9. SALAMOL [Concomitant]
     Dates: start: 20140221
  10. SALBUTAMOL [Concomitant]
     Dates: start: 20140221
  11. TRAMADOL [Concomitant]
     Dates: start: 20140221, end: 20140509

REACTIONS (1)
  - Weight increased [Unknown]
